FAERS Safety Report 11659897 (Version 1)
Quarter: 2015Q4

REPORT INFORMATION
  Report Type: Spontaneous
  Country: US (occurrence: None)
  Receive Date: 20151023
  Receipt Date: 20151023
  Transmission Date: 20160304
  Serious: Yes (Hospitalization)
  Sender: FDA-Public Use
  Company Number: None

PATIENT
  Age: 51 Year
  Sex: Male

DRUGS (3)
  1. BUPROPRION [Suspect]
     Active Substance: BUPROPION
     Indication: DEPRESSION
     Dosage: 2 TABS
     Route: 048
     Dates: start: 20150801, end: 20150929
  2. BRETIMINE [Concomitant]
  3. ATORVASTATIN [Concomitant]
     Active Substance: ATORVASTATIN

REACTIONS (5)
  - Vertigo [None]
  - Agitation [None]
  - Tardive dyskinesia [None]
  - Catatonia [None]
  - Unresponsive to stimuli [None]

NARRATIVE: CASE EVENT DATE: 20150928
